FAERS Safety Report 10178185 (Version 2)
Quarter: 2014Q2

REPORT INFORMATION
  Report Type: Spontaneous
  Country: JP (occurrence: JP)
  Receive Date: 20140519
  Receipt Date: 20140523
  Transmission Date: 20141212
  Serious: Yes (Hospitalization, Disabling)
  Sender: FDA-Public Use
  Company Number: JP-AMGEN-JPNSP2014035842

PATIENT
  Age: 83 Year
  Sex: Male
  Weight: 46 kg

DRUGS (19)
  1. PRALIA [Suspect]
     Indication: OSTEOPOROSIS
     Dosage: UNK
     Route: 058
     Dates: start: 20140423
  2. DENOTAS [Concomitant]
  3. CADUET [Concomitant]
     Indication: HYPERTENSION
     Dosage: 1, QD
     Route: 048
  4. CADUET [Concomitant]
     Indication: CARDIAC FAILURE
  5. ARTIST [Concomitant]
     Indication: HYPERTENSION
     Dosage: 1, QD
     Route: 048
  6. ARTIST [Concomitant]
     Indication: CARDIAC FAILURE
  7. FEBUXOSTAT [Concomitant]
     Indication: HYPERURICAEMIA
     Dosage: 2, QD
     Route: 048
  8. ATELEC [Concomitant]
     Indication: HYPERTENSION
     Dosage: 2, QD
     Route: 048
  9. ATELEC [Concomitant]
     Indication: CARDIAC FAILURE
  10. MEMARY [Concomitant]
     Indication: DEMENTIA
     Dosage: 2, QD
     Route: 048
  11. CALTAN [Concomitant]
     Indication: OSTEOPOROSIS
     Dosage: 1, QD
     Route: 048
  12. NATRIX [Concomitant]
     Indication: HYPERTENSION
     Dosage: 1, QD
     Route: 048
  13. NATRIX [Concomitant]
     Indication: CARDIAC FAILURE
  14. CELECOX [Concomitant]
     Indication: BACK PAIN
     Dosage: 1, QD
     Route: 048
  15. PARIET [Concomitant]
     Indication: GASTRITIS
     Dosage: 1, QD
     Route: 048
  16. XYZAL [Concomitant]
     Indication: PRURITUS
     Dosage: 1, QD
     Route: 048
  17. CELESTAMINE                        /00252801/ [Concomitant]
     Indication: PRURITUS
     Dosage: 1, BID
     Route: 048
  18. REMINYL [Concomitant]
     Indication: DEMENTIA
     Dosage: 1, BID
     Route: 048
  19. LENDORMIN [Concomitant]
     Indication: INSOMNIA
     Dosage: 1, QD
     Route: 048

REACTIONS (4)
  - Tetany [Recovered/Resolved]
  - Dizziness [Recovered/Resolved]
  - Electrocardiogram QT prolonged [Recovered/Resolved]
  - Hypocalcaemia [Recovered/Resolved]
